FAERS Safety Report 12609579 (Version 1)
Quarter: 2016Q3

REPORT INFORMATION
  Report Type: Spontaneous
  Country: US (occurrence: None)
  Receive Date: 20160729
  Receipt Date: 20160729
  Transmission Date: 20161109
  Serious: Yes (Other)
  Sender: FDA-Public Use
  Company Number: None

PATIENT
  Age: 26 Year
  Sex: Female
  Weight: 67.13 kg

DRUGS (1)
  1. ESCITALOPRAM 10 MG UNKNOWN [Suspect]
     Active Substance: ESCITALOPRAM OXALATE
     Indication: MAJOR DEPRESSION
     Route: 048
     Dates: start: 20160701, end: 20160715

REACTIONS (4)
  - Hypersomnia [None]
  - Product substitution issue [None]
  - Depression [None]
  - Increased appetite [None]

NARRATIVE: CASE EVENT DATE: 20160107
